FAERS Safety Report 6105763-5 (Version None)
Quarter: 2009Q1

REPORT INFORMATION
  Report Type: 
  Country: None (occurrence: None)
  Receive Date: 20090306
  Receipt Date: 20090306
  Transmission Date: 20090719
  Serious: Yes (Death, Other)
  Sender: FDA-Public Use
  Company Number: KR-JNJFOC-20090301388

PATIENT
  Age: 68 Year
  Sex: Female

DRUGS (1)
  1. SPORANOX [Suspect]
     Indication: FEBRILE NEUTROPENIA
     Route: 042

REACTIONS (2)
  - ACUTE MYELOID LEUKAEMIA [None]
  - ANAPHYLACTIC SHOCK [None]
